FAERS Safety Report 26145496 (Version 1)
Quarter: 2025Q4

REPORT INFORMATION
  Report Type: Spontaneous
  Country: US (occurrence: None)
  Receive Date: 20251210
  Receipt Date: 20251210
  Transmission Date: 20260118
  Serious: Yes (Other)
  Sender: FDA-CTU
  Company Number: None

PATIENT
  Age: 82 Year
  Sex: Female
  Weight: 55.8 kg

DRUGS (2)
  1. INDOMETHACIN [Suspect]
     Active Substance: INDOMETHACIN
     Indication: Preoperative care
     Dosage: 100 MG PROPHYLACTIC  RECTAL
     Route: 054
     Dates: start: 20251031, end: 20251031
  2. INDOMETHACIN [Suspect]
     Active Substance: INDOMETHACIN
     Indication: Prophylaxis

REACTIONS (2)
  - Procedural pancreatitis [None]
  - Post procedural complication [None]

NARRATIVE: CASE EVENT DATE: 20251124
